FAERS Safety Report 7073232-4 (Version None)
Quarter: 2010Q4

REPORT INFORMATION
  Report Type: 
  Country: None (occurrence: None)
  Receive Date: 20101029
  Receipt Date: 20100611
  Transmission Date: 20110411
  Serious: No
  Sender: FDA-Public Use
  Company Number: A0859400A

PATIENT
  Age: 76 Year
  Sex: Female

DRUGS (10)
  1. ADVAIR DISKUS 100/50 [Suspect]
     Indication: ASTHMA
     Dosage: 1PUFF TWICE PER DAY
     Route: 055
     Dates: start: 20050101
  2. ADVAIR DISKUS 100/50 [Suspect]
     Dosage: 1PUFF TWICE PER DAY
     Route: 055
     Dates: start: 20100401, end: 20100401
  3. SINGULAIR [Concomitant]
  4. SPIRIVA [Concomitant]
  5. UNIPHYL [Concomitant]
  6. ALBUTEROL [Concomitant]
  7. METFORMIN [Concomitant]
  8. VITAMIN D [Concomitant]
  9. PYRIDOXINE HCL [Concomitant]
  10. VITAMIN B-12 [Concomitant]

REACTIONS (2)
  - DRUG INEFFECTIVE [None]
  - DYSPNOEA [None]
